FAERS Safety Report 10232338 (Version 1)
Quarter: 2014Q2

REPORT INFORMATION
  Report Type: Report from Study
  Country: AR (occurrence: AR)
  Receive Date: 20140612
  Receipt Date: 20140612
  Transmission Date: 20141212
  Serious: Yes (Hospitalization, Other)
  Sender: FDA-Public Use
  Company Number: PHHY2014AR067686

PATIENT
  Age: 58 Year
  Sex: Male

DRUGS (3)
  1. ONBREZ [Suspect]
     Indication: DYSPNOEA
     Dosage: UNK
     Route: 055
  2. ONBREZ [Suspect]
     Indication: OBSTRUCTIVE AIRWAYS DISORDER
  3. ONBREZ [Suspect]
     Indication: TOTAL LUNG CAPACITY DECREASED

REACTIONS (4)
  - Pulmonary mass [Unknown]
  - Rib fracture [Unknown]
  - Pneumonia [Unknown]
  - Procedural pain [Unknown]
